FAERS Safety Report 5269818-X (Version None)
Quarter: 2007Q1

REPORT INFORMATION
  Report Type: 
  Country: None (occurrence: None)
  Receive Date: 20070314
  Receipt Date: 20070305
  Transmission Date: 20070707
  Serious: Yes (Death)
  Sender: FDA-Public Use
  Company Number: TPG2007A00038

PATIENT
  Age: 65 Year
  Sex: Male

DRUGS (9)
  1. ACTOS [Suspect]
     Indication: DIABETES MELLITUS NON-INSULIN-DEPENDENT
     Dosage: 30 MG (30 MG, 1 IN 1 D) PER ORAL
     Route: 048
     Dates: start: 20030531, end: 20061016
  2. ALLOPURINOL [Concomitant]
  3. ACETYLSALICYLIC ACID 1A PHARMA (ACETYLSALICYLIC ACID) [Concomitant]
  4. DELUMO (FELODIPINE, RAMIPRIL) [Concomitant]
  5. GLIMEPIRIDE CT (GLIMEPIRIDE) [Concomitant]
  6. METFORMIN HCL [Concomitant]
  7. MOBLOC (FELODIPINE, METOPROLOL SUCCINATE) [Concomitant]
  8. PENTAERYTHIRITOL TETRANITRATE TAB [Concomitant]
  9. SIMVASTATIN ^WOLFF^ (SIMVASTATIN) [Concomitant]

REACTIONS (18)
  - AGITATION [None]
  - APNOEA [None]
  - ATRIAL FIBRILLATION [None]
  - ATRIOVENTRICULAR BLOCK FIRST DEGREE [None]
  - BUNDLE BRANCH BLOCK RIGHT [None]
  - CARDIAC FAILURE CHRONIC [None]
  - CARDIAC HYPERTROPHY [None]
  - CARDIOVASCULAR INSUFFICIENCY [None]
  - CONFUSIONAL STATE [None]
  - CORONARY ARTERY DISEASE [None]
  - GENERALISED OEDEMA [None]
  - HYPERTENSION [None]
  - NERVOUSNESS [None]
  - PULMONARY EMBOLISM [None]
  - REFUSAL OF TREATMENT BY PATIENT [None]
  - RESUSCITATION [None]
  - SKIN ULCER [None]
  - SPINAL DISORDER [None]
